FAERS Safety Report 7167736-3 (Version None)
Quarter: 2010Q4

REPORT INFORMATION
  Report Type: 
  Country: None (occurrence: None)
  Receive Date: 20101216
  Receipt Date: 20100921
  Transmission Date: 20110411
  Serious: No
  Sender: FDA-Public Use
  Company Number: A0882253A

PATIENT
  Age: 39 Year
  Sex: Female

DRUGS (1)
  1. NICORETTE [Suspect]
     Indication: SMOKING CESSATION THERAPY
     Dates: start: 20100910, end: 20100912

REACTIONS (5)
  - COUGH [None]
  - DYSPHONIA [None]
  - GLOSSODYNIA [None]
  - OROPHARYNGEAL PAIN [None]
  - TONGUE BLISTERING [None]
